FAERS Safety Report 8264627-1 (Version None)
Quarter: 2012Q2

REPORT INFORMATION
  Report Type: 
  Country: None (occurrence: None)
  Receive Date: 20120403
  Receipt Date: 20120319
  Transmission Date: 20120825
  Serious: Yes (Hospitalization, Other)
  Sender: FDA-Public Use
  Company Number: 2012MA003606

PATIENT
  Sex: Male
  Weight: 2.4 kg

DRUGS (15)
  1. AMIODARONE HCL [Suspect]
     Indication: TORSADE DE POINTES
     Dosage: 1 MG/KG;
  2. PHENYTOIN [Concomitant]
  3. VECURONIUM BROMIDE [Concomitant]
  4. POTASSIUM [Concomitant]
  5. ALBUMIN (HUMAN) [Concomitant]
  6. MILRINONE [Concomitant]
  7. ESMOLOL HCL [Suspect]
     Indication: TORSADE DE POINTES
     Dosage: 66 UG/KG;;IV
     Route: 042
  8. ESMOLOL HCL [Suspect]
     Indication: VENTRICULAR TACHYCARDIA
     Dosage: 66 UG/KG;;IV
     Route: 042
  9. DOPAMINE HCL [Suspect]
  10. MAGNESIUM [Concomitant]
  11. ISOPROTERENOL HCL [Concomitant]
  12. CALCIUM GLUCONATE [Concomitant]
  13. LIDOCAINE HCL [Suspect]
     Indication: TORSADE DE POINTES
     Dosage: 1 MG/KG;X1;IV
     Route: 042
  14. LIDOCAINE HCL [Suspect]
     Indication: VENTRICULAR TACHYCARDIA
     Dosage: 1 MG/KG;X1;IV
     Route: 042
  15. FENTANYL CITRATE [Concomitant]

REACTIONS (7)
  - TOXICITY TO VARIOUS AGENTS [None]
  - CONVULSION [None]
  - DRUG INTERACTION [None]
  - AREFLEXIA [None]
  - NEUROLOGICAL EXAMINATION ABNORMAL [None]
  - PUPILLARY REFLEX IMPAIRED [None]
  - NEUROTOXICITY [None]
